FAERS Safety Report 4431650-4 (Version None)
Quarter: 2004Q3

REPORT INFORMATION
  Report Type: 
  Country: None (occurrence: None)
  Receive Date: 20040721
  Receipt Date: 20040211
  Transmission Date: 20050211
  Serious: Yes (Death)
  Sender: FDA-Public Use
  Company Number: OMPQ-PR-0402S-0122

PATIENT
  Age: 70 Year
  Sex: Female

DRUGS (9)
  1. OMNIPAQUE 180 [Suspect]
     Indication: ABDOMINAL PAIN
     Dosage: 100 ML, SINGLE DOSE, I.V.
     Route: 042
     Dates: start: 20040123, end: 20040123
  2. PREMARIN [Concomitant]
  3. GLYBURIDE [Concomitant]
  4. METFORMIN [Concomitant]
  5. ENALAPRIL [Concomitant]
  6. HYDROCHLOROTHIAZIDE [Concomitant]
  7. FUROSEMIDE [Concomitant]
  8. QUININE BISULFATE [Concomitant]
  9. ALDACTONE [Concomitant]

REACTIONS (1)
  - ANAPHYLACTIC SHOCK [None]
